FAERS Safety Report 8394028-7 (Version None)
Quarter: 2012Q2

REPORT INFORMATION
  Report Type: 
  Country: None (occurrence: None)
  Receive Date: 20120530
  Receipt Date: 20120521
  Transmission Date: 20120825
  Serious: Yes (Other)
  Sender: FDA-Public Use
  Company Number: US-JNJFOC-20120517253

PATIENT

DRUGS (3)
  1. TOPAMAX [Suspect]
     Route: 048
  2. TOPAMAX [Suspect]
     Indication: PRODUCT USED FOR UNKNOWN INDICATION
     Route: 048
  3. TOPAMAX [Suspect]
     Route: 048

REACTIONS (8)
  - EYE PAIN [None]
  - OCULAR HYPERAEMIA [None]
  - CHOLELITHIASIS [None]
  - SPEECH DISORDER [None]
  - ACNE [None]
  - INTRAOCULAR PRESSURE INCREASED [None]
  - WEIGHT DECREASED [None]
  - GASTRIC DISORDER [None]
